FAERS Safety Report 9619657 (Version 2)
Quarter: 2013Q4

REPORT INFORMATION
  Report Type: Report from Study
  Country: AU (occurrence: AU)
  Receive Date: 20131014
  Receipt Date: 20131014
  Transmission Date: 20140711
  Serious: Yes (Other)
  Sender: FDA-Public Use
  Company Number: PHHY2013AU106471

PATIENT
  Age: 69 Year
  Sex: Female

DRUGS (2)
  1. ACLASTA [Suspect]
     Dosage: 5 MG
     Route: 042
     Dates: start: 20110615
  2. ACLASTA [Suspect]
     Dosage: 5 MG
     Route: 042
     Dates: start: 20120820

REACTIONS (14)
  - Uterine leiomyoma [Unknown]
  - Vaginal discharge [Unknown]
  - Abdominal pain lower [Unknown]
  - Haemorrhage [Unknown]
  - Cold sweat [Unknown]
  - Crepitations [Unknown]
  - Tachycardia [Unknown]
  - Chest pain [Unknown]
  - Influenza [Recovered/Resolved]
  - Malaise [Unknown]
  - Hyperhidrosis [Unknown]
  - Cough [Recovered/Resolved]
  - Pyrexia [Unknown]
  - Nausea [Unknown]
